FAERS Safety Report 9074786 (Version 1)
Quarter: 2013Q1

REPORT INFORMATION
  Report Type: Spontaneous
  Country: US (occurrence: US)
  Receive Date: 20130129
  Receipt Date: 20130129
  Transmission Date: 20140127
  Serious: No
  Sender: FDA-Public Use
  Company Number: US-ABBOTT-12P-163-0905531-00

PATIENT
  Age: 80 Year
  Sex: Male
  Weight: 81.72 kg

DRUGS (3)
  1. LUPRON DEPOT [Suspect]
     Indication: PRODUCT USED FOR UNKNOWN INDICATION
     Dates: start: 201006
  2. DEGARELIX [Suspect]
     Indication: PROSTATE CANCER
     Route: 058
     Dates: start: 20120116
  3. UNKNOWN MEDICATIONS [Concomitant]
     Indication: PRODUCT USED FOR UNKNOWN INDICATION

REACTIONS (3)
  - Urinary tract infection [Unknown]
  - Dysuria [Unknown]
  - Prostatic specific antigen increased [Unknown]
